FAERS Safety Report 5277238-7 (Version None)
Quarter: 2007Q1

REPORT INFORMATION
  Report Type: 
  Country: None (occurrence: None)
  Receive Date: 20070327
  Receipt Date: 20070312
  Transmission Date: 20070707
  Serious: Yes (Hospitalization)
  Sender: FDA-Public Use
  Company Number: PHEH2007US03002

PATIENT
  Sex: Female

DRUGS (3)
  1. MYFORTIC [Suspect]
     Indication: RENAL TRANSPLANT
     Dosage: 360 MG, BID
     Route: 048
  2. PROGRAF [Concomitant]
  3. PREDNISONE [Concomitant]

REACTIONS (5)
  - DEHYDRATION [None]
  - DIABETES INSIPIDUS [None]
  - DIARRHOEA [None]
  - HYPOSTHENURIA [None]
  - URINE OUTPUT INCREASED [None]
